FAERS Safety Report 9207329 (Version 1)
Quarter: 2013Q2

REPORT INFORMATION
  Report Type: Spontaneous
  Country: US (occurrence: US)
  Receive Date: 20130403
  Receipt Date: 20130403
  Transmission Date: 20140414
  Serious: No
  Sender: FDA-Public Use
  Company Number: US-TEVA-395812USA

PATIENT
  Sex: Female

DRUGS (1)
  1. AZILECT [Suspect]

REACTIONS (1)
  - Alopecia [Unknown]
